FAERS Safety Report 8503824-4 (Version None)
Quarter: 2012Q3

REPORT INFORMATION
  Report Type: 
  Country: None (occurrence: None)
  Receive Date: 20120702
  Receipt Date: 20120615
  Transmission Date: 20120928
  Serious: Yes (Other)
  Sender: FDA-Public Use
  Company Number: TCI2012A02641

PATIENT
  Age: 78 Year
  Sex: Male

DRUGS (10)
  1. ROZEREM [Suspect]
     Indication: INSOMNIA
     Dosage: 8 MG (8 MG, 1 IN 1 D) PER ORAL, 8 MG (8 MG, 1 IN 1 D) PER ORAL, 4 MG (4 MG, 1 IN 1 D) PER ORAL
     Route: 048
     Dates: start: 20120509, end: 20120511
  2. ROZEREM [Suspect]
     Indication: INSOMNIA
     Dosage: 8 MG (8 MG, 1 IN 1 D) PER ORAL, 8 MG (8 MG, 1 IN 1 D) PER ORAL, 4 MG (4 MG, 1 IN 1 D) PER ORAL
     Route: 048
     Dates: start: 20120413, end: 20120425
  3. ROZEREM [Suspect]
     Indication: INSOMNIA
     Dosage: 8 MG (8 MG, 1 IN 1 D) PER ORAL, 8 MG (8 MG, 1 IN 1 D) PER ORAL, 4 MG (4 MG, 1 IN 1 D) PER ORAL
     Route: 048
     Dates: start: 20120507, end: 20120508
  4. MIDAZOLAM [Concomitant]
  5. AMINOPHYLLINE [Concomitant]
  6. FUNGUARD (MICAFUNGIN SODIUM) [Concomitant]
  7. BROTIZOLAM [Concomitant]
  8. FAMOTIDINE [Concomitant]
  9. VFEND [Concomitant]
  10. BACTRIM [Concomitant]

REACTIONS (6)
  - PNEUMONIA [None]
  - ATELECTASIS [None]
  - HYPOTENSION [None]
  - BRADYCARDIA [None]
  - CHEST X-RAY ABNORMAL [None]
  - RESPIRATORY ARREST [None]
